FAERS Safety Report 23477797 (Version 1)
Quarter: 2024Q1

REPORT INFORMATION
  Report Type: Spontaneous
  Country: US (occurrence: US)
  Receive Date: 20240204
  Receipt Date: 20240204
  Transmission Date: 20240410
  Serious: No
  Sender: FDA-Public Use
  Company Number: US-EXELIXIS-CABO-23067446

PATIENT
  Sex: Male

DRUGS (14)
  1. CABOMETYX [Suspect]
     Active Substance: CABOZANTINIB S-MALATE
     Indication: Renal cancer
     Dosage: UNK
  2. LENVIMA [Suspect]
     Active Substance: LENVATINIB
     Indication: Renal cancer
     Dosage: 18 MG, QD
     Route: 048
     Dates: start: 20230727
  3. LENVIMA [Suspect]
     Active Substance: LENVATINIB
     Dosage: 18 MG, QD
     Route: 048
     Dates: start: 202308
  4. EVEROLIMUS [Concomitant]
     Active Substance: EVEROLIMUS
  5. PROCHLORPERAZINE MALEATE [Concomitant]
     Active Substance: PROCHLORPERAZINE MALEATE
  6. ONDANSETRON HYDROCHLORIDE [Concomitant]
     Active Substance: ONDANSETRON HYDROCHLORIDE
  7. SIMVASTATIN [Concomitant]
     Active Substance: SIMVASTATIN
  8. GLIPIZIDE [Concomitant]
     Active Substance: GLIPIZIDE
  9. LEVOTHYROXINE SODIUM [Concomitant]
     Active Substance: LEVOTHYROXINE SODIUM
  10. AMLODIPINE BESYLATE [Concomitant]
     Active Substance: AMLODIPINE BESYLATE
  11. SODIUM BICARBONATE [Concomitant]
     Active Substance: SODIUM BICARBONATE
  12. GABAPENTIN [Concomitant]
     Active Substance: GABAPENTIN
  13. MAGNESIUM OXIDE [Concomitant]
     Active Substance: MAGNESIUM OXIDE
  14. METOPROLOL SUCCINATE [Concomitant]
     Active Substance: METOPROLOL SUCCINATE

REACTIONS (5)
  - Skin disorder [Unknown]
  - Drug ineffective [Unknown]
  - Pain in extremity [Unknown]
  - Dysphonia [Unknown]
  - Blood pressure increased [Unknown]
